FAERS Safety Report 9809005 (Version 3)
Quarter: 2014Q2

REPORT INFORMATION
  Report Type: Spontaneous
  Country: BR (occurrence: BR)
  Receive Date: 20140110
  Receipt Date: 20140522
  Transmission Date: 20141212
  Serious: Yes (Hospitalization)
  Sender: FDA-Public Use
  Company Number: BR-GLAXOSMITHKLINE-A1056168A

PATIENT
  Age: 6 Year
  Sex: Male
  Weight: 36 kg

DRUGS (1)
  1. SERETIDE [Suspect]
     Indication: ASTHMA
     Dosage: 1PUFF TWICE PER DAY
     Route: 055
     Dates: start: 2010

REACTIONS (4)
  - H1N1 influenza [Recovered/Resolved]
  - Pruritus generalised [Not Recovered/Not Resolved]
  - Rash macular [Not Recovered/Not Resolved]
  - Product quality issue [Unknown]
